FAERS Safety Report 4392457-X (Version None)
Quarter: 2004Q3

REPORT INFORMATION
  Report Type: 
  Country: None (occurrence: None)
  Receive Date: 20040702
  Receipt Date: 20040309
  Transmission Date: 20050211
  Serious: Yes (Other)
  Sender: FDA-Public Use
  Company Number: 2004UW04491

PATIENT
  Age: 86 Year
  Sex: Female
  Weight: 69.8539 kg

DRUGS (5)
  1. CRESTOR [Suspect]
     Indication: BLOOD CHOLESTEROL INCREASED
     Dosage: 5 MG PO
     Route: 048
     Dates: start: 20040201
  2. ASPIRIN [Concomitant]
  3. ACIPHEX [Concomitant]
  4. SYNTHROID [Concomitant]
  5. LORAZEPAM [Concomitant]

REACTIONS (2)
  - MYALGIA [None]
  - NERVOUSNESS [None]
